FAERS Safety Report 4798037-6 (Version None)
Quarter: 2005Q3

REPORT INFORMATION
  Report Type: 
  Country: None (occurrence: None)
  Receive Date: 20050929
  Receipt Date: 20050818
  Transmission Date: 20060218
  Serious: No
  Sender: FDA-Public Use
  Company Number: 05P-163-0308542

PATIENT
  Age: 53 Year
  Sex: Female
  Weight: 95.2554 kg

DRUGS (3)
  1. HUMIRA [Suspect]
     Indication: PSORIATIC ARTHROPATHY
     Dosage: 40 MG, 1 IN 2 WK, SUBCUTANEOUS
     Route: 058
     Dates: start: 20040101
  2. ATENOLOL [Concomitant]
  3. IBUPROFEN [Concomitant]

REACTIONS (4)
  - EYE DISCHARGE [None]
  - EYE PAIN [None]
  - EYE SWELLING [None]
  - LACRIMATION INCREASED [None]
